FAERS Safety Report 8508892-1 (Version None)
Quarter: 2012Q3

REPORT INFORMATION
  Report Type: 
  Country: None (occurrence: None)
  Receive Date: 20120713
  Receipt Date: 20120705
  Transmission Date: 20120928
  Serious: Yes (Hospitalization)
  Sender: FDA-Public Use
  Company Number: GB-NOVOPROD-347945

PATIENT
  Age: 65 Year
  Sex: Male
  Weight: 65.9 kg

DRUGS (2)
  1. VICTOZA [Suspect]
     Dosage: NOT SUSPECT;PLACEBO CASE
  2. PLACEBO [Suspect]
     Indication: TYPE 2 DIABETES MELLITUS
     Dosage: 0.6 MG, QD
     Dates: start: 20120224, end: 20120307

REACTIONS (1)
  - LOWER RESPIRATORY TRACT INFECTION [None]
